FAERS Safety Report 21882563 (Version 1)
Quarter: 2023Q1

REPORT INFORMATION
  Report Type: Report from Study
  Country: US (occurrence: US)
  Receive Date: 20230119
  Receipt Date: 20230119
  Transmission Date: 20230418
  Serious: No
  Sender: FDA-Public Use
  Company Number: US-Accord-273945

PATIENT
  Sex: Male

DRUGS (1)
  1. CLOZAPINE [Suspect]
     Active Substance: CLOZAPINE
     Indication: Schizoaffective disorder
     Dosage: 25MG, 1/2 TABLET, ORALLY, TWICE DAILY X?2 WEEKS, THEN TITRATE UP TO A TOTAL OF?150MG PER DAY
     Route: 048

REACTIONS (1)
  - Product dose omission issue [Unknown]
